FAERS Safety Report 19856260 (Version 1)
Quarter: 2021Q3

REPORT INFORMATION
  Report Type: Spontaneous
  Country: CA (occurrence: CA)
  Receive Date: 20210920
  Receipt Date: 20210920
  Transmission Date: 20211014
  Serious: Yes (Disabling)
  Sender: FDA-Public Use
  Company Number: CA-TEVA-2021-CA-1954002

PATIENT
  Age: 69 Year
  Sex: Male

DRUGS (18)
  1. ALDACTONE [Concomitant]
     Active Substance: SPIRONOLACTONE
  2. CRESTOR ? 40MG [Concomitant]
  3. LASIX [Concomitant]
     Active Substance: FUROSEMIDE
  4. XARELTO [Concomitant]
     Active Substance: RIVAROXABAN
  5. ZYLOPRIM [Concomitant]
     Active Substance: ALLOPURINOL
  6. D?TABS [Concomitant]
     Active Substance: CHOLECALCIFEROL
  7. K?DUR [Concomitant]
     Active Substance: POTASSIUM CHLORIDE
  8. PANTOLOC [Concomitant]
     Active Substance: PANTOPRAZOLE SODIUM
  9. SPIRIVA [Concomitant]
     Active Substance: TIOTROPIUM BROMIDE MONOHYDRATE
  10. SYNTHROID [Concomitant]
     Active Substance: LEVOTHYROXINE SODIUM
  11. BISOPROLOL [Concomitant]
     Active Substance: BISOPROLOL
  12. FORXIGA [Concomitant]
     Active Substance: DAPAGLIFLOZIN
  13. SYNTHROID TAB 25MCG [Concomitant]
  14. AMIODARONE [Suspect]
     Active Substance: AMIODARONE
     Indication: ARRHYTHMIA
     Dosage: 200 MILLIGRAM DAILY;
     Route: 048
  15. MONOCOR ?(5MG) [Concomitant]
  16. DIAMICRON MR [Concomitant]
     Active Substance: GLICLAZIDE
  17. ENTRESTO [Concomitant]
     Active Substance: SACUBITRIL\VALSARTAN
  18. VENTOLIN [Concomitant]
     Active Substance: ALBUTEROL SULFATE
     Route: 055

REACTIONS (2)
  - Thyroiditis [Unknown]
  - Interstitial lung disease [Unknown]
